FAERS Safety Report 5657407-4 (Version None)
Quarter: 2008Q1

REPORT INFORMATION
  Report Type: 
  Country: None (occurrence: None)
  Receive Date: 20080310
  Receipt Date: 20080305
  Transmission Date: 20080703
  Serious: Yes (Other)
  Sender: FDA-Public Use
  Company Number: PHHY2008JP02701

PATIENT
  Sex: Male

DRUGS (2)
  1. TOFRANIL [Suspect]
     Dosage: 25 MG/DAY
     Route: 048
  2. ANTIHYPERTENSIVES [Concomitant]

REACTIONS (1)
  - PARKINSON'S DISEASE [None]
